FAERS Safety Report 6849484-X (Version None)
Quarter: 2010Q3

REPORT INFORMATION
  Report Type: 
  Country: None (occurrence: None)
  Receive Date: 20100716
  Receipt Date: 20100707
  Transmission Date: 20110219
  Serious: Yes (Hospitalization)
  Sender: FDA-Public Use
  Company Number: PHHO2008DE09310

PATIENT
  Sex: Female
  Weight: 71.4 kg

DRUGS (4)
  1. SANDIMMUNE [Suspect]
     Indication: RENAL TRANSPLANT
     Dosage: 125 MG, BID
     Route: 048
  2. MYFORTIC [Suspect]
     Indication: RENAL TRANSPLANT
     Dosage: 720 MG, BID
     Route: 048
  3. NO TREATMENT RECEIVED NOMED [Suspect]
  4. DECORTIN [Suspect]
     Indication: RENAL TRANSPLANT
     Dosage: 25 MG, QD
     Route: 048

REACTIONS (4)
  - ABDOMINAL PAIN [None]
  - CYSTITIS [None]
  - NEPHRECTOMY [None]
  - RENAL CYST [None]
